FAERS Safety Report 16252010 (Version 1)
Quarter: 2019Q2

REPORT INFORMATION
  Report Type: Spontaneous
  Country: FR (occurrence: FR)
  Receive Date: 20190429
  Receipt Date: 20190429
  Transmission Date: 20190711
  Serious: Yes (Hospitalization)
  Sender: FDA-Public Use
  Company Number: FR-TEVA-2019-FR-1042247

PATIENT
  Age: 56 Year
  Sex: Male

DRUGS (2)
  1. DIAZEPAM TEVA 5 MG, COMPRIM? [Suspect]
     Active Substance: DIAZEPAM
     Indication: ANXIETY
     Route: 048
     Dates: start: 20181204
  2. METHADONE AP-HP 40 MG, G?LULE [Suspect]
     Active Substance: METHADONE HYDROCHLORIDE
     Indication: DRUG DEPENDENCE
     Route: 048
     Dates: start: 20181204, end: 20181204

REACTIONS (1)
  - Miosis [Recovered/Resolved]

NARRATIVE: CASE EVENT DATE: 20181204
